FAERS Safety Report 4354111-X (Version None)
Quarter: 2004Q2

REPORT INFORMATION
  Report Type: 
  Country: None (occurrence: None)
  Receive Date: 20040506
  Receipt Date: 20040428
  Transmission Date: 20050107
  Serious: Yes (Hospitalization)
  Sender: FDA-Public Use
  Company Number: JP-JNJFOC-20040402353

PATIENT
  Sex: Male

DRUGS (15)
  1. ITRIZOLE [Suspect]
     Indication: ONYCHOMYCOSIS
  2. GLIMEPIRIDE [Suspect]
     Indication: DRUG USE FOR UNKNOWN INDICATION
  3. BUNAZOSIN HYDROCHLORIDE [Suspect]
     Indication: DRUG USE FOR UNKNOWN INDICATION
  4. CANDESARTAN CILEXETIL [Suspect]
     Indication: DRUG USE FOR UNKNOWN INDICATION
  5. MEFRUSIDE [Suspect]
     Indication: DRUG USE FOR UNKNOWN INDICATION
  6. VOGLIBOSE [Concomitant]
  7. DIGOXIN [Concomitant]
  8. RANITIDINE HYDROCHLORIDE [Concomitant]
  9. NICORANDIL [Concomitant]
  10. ATORVASTATIN CALCIUM [Concomitant]
  11. WARFARIN POTASSIUM [Concomitant]
  12. METFORMIN HYDROCHLORIDE [Concomitant]
  13. ISOSORBIDE DINITRATE [Concomitant]
  14. TICLOPIDINE HCL [Concomitant]
  15. AMIODARONE HYDROCHLORIDE [Concomitant]
     Route: 049

REACTIONS (11)
  - ATRIAL FIBRILLATION [None]
  - BLOOD GLUCOSE INCREASED [None]
  - BLOOD PRESSURE SYSTOLIC INCREASED [None]
  - BODY TEMPERATURE DECREASED [None]
  - BRADYCARDIA [None]
  - CHEST DISCOMFORT [None]
  - CHEST PAIN [None]
  - FATIGUE [None]
  - HEADACHE [None]
  - MALAISE [None]
  - PHARYNGOLARYNGEAL PAIN [None]
